FAERS Safety Report 17275766 (Version 1)
Quarter: 2020Q1

REPORT INFORMATION
  Report Type: Spontaneous
  Country: GB (occurrence: GB)
  Receive Date: 20200116
  Receipt Date: 20200116
  Transmission Date: 20200409
  Serious: Yes (Disabling)
  Sender: FDA-Public Use
  Company Number: GB-SAMSUNG BIOEPIS-SB-2020-00020

PATIENT
  Age: 59 Year
  Sex: Male

DRUGS (1)
  1. BENEPALI [Suspect]
     Active Substance: ETANERCEPT
     Indication: ANKYLOSING SPONDYLITIS
     Route: 058
     Dates: start: 201802, end: 201804

REACTIONS (7)
  - Drug ineffective [Recovered/Resolved with Sequelae]
  - Condition aggravated [Unknown]
  - Eye symptom [Unknown]
  - Product substitution issue [Unknown]
  - Influenza like illness [Unknown]
  - C-reactive protein abnormal [Unknown]
  - Musculoskeletal stiffness [Unknown]

NARRATIVE: CASE EVENT DATE: 201802
